FAERS Safety Report 5909016-7 (Version None)
Quarter: 2008Q4

REPORT INFORMATION
  Report Type: 
  Country: None (occurrence: None)
  Receive Date: 20081006
  Receipt Date: 20081003
  Transmission Date: 20090506
  Serious: Yes (Death, Hospitalization)
  Sender: FDA-Public Use
  Company Number: HU-BRISTOL-MYERS SQUIBB COMPANY-13971833

PATIENT
  Age: 60 Year
  Sex: Male
  Weight: 65 kg

DRUGS (5)
  1. CISPLATIN [Suspect]
     Indication: HEAD AND NECK CANCER
     Route: 042
     Dates: start: 20071025, end: 20071025
  2. ALIMTA [Suspect]
     Indication: HEAD AND NECK CANCER
     Route: 042
     Dates: start: 20071025, end: 20071025
  3. FOLIC ACID [Concomitant]
     Dates: start: 20070927, end: 20071030
  4. METHYLPREDNISOLONE [Concomitant]
     Dates: start: 20071027, end: 20071029
  5. VITAMIN B-12 [Concomitant]
     Dates: start: 20070927, end: 20070927

REACTIONS (2)
  - GASTROINTESTINAL NECROSIS [None]
  - MESENTERIC ARTERY THROMBOSIS [None]
